FAERS Safety Report 15984307 (Version 1)
Quarter: 2019Q1

REPORT INFORMATION
  Report Type: Spontaneous
  Country: US (occurrence: US)
  Receive Date: 20190220
  Receipt Date: 20190220
  Transmission Date: 20190418
  Serious: No
  Sender: FDA-Public Use
  Company Number: US-VEROSCIENCE-VER-2019-00003

PATIENT

DRUGS (1)
  1. CYCLOSET [Suspect]
     Active Substance: BROMOCRIPTINE MESYLATE
     Indication: DIABETES MELLITUS
     Dosage: 0.8 MG MILLIGRAM(S), QD
     Route: 048
     Dates: start: 20190104

REACTIONS (1)
  - Headache [Unknown]
